FAERS Safety Report 7040994-1 (Version None)
Quarter: 2010Q4

REPORT INFORMATION
  Report Type: 
  Country: None (occurrence: None)
  Receive Date: 20101013
  Receipt Date: 20100928
  Transmission Date: 20110411
  Serious: Yes (Hospitalization, Other)
  Sender: FDA-Public Use
  Company Number: PHHY2010FR65244

PATIENT
  Sex: Male

DRUGS (9)
  1. TAREG [Suspect]
     Dosage: 60 MG, QD
     Route: 048
  2. FENOFIBRATE [Suspect]
     Dosage: 200 MG, QD
  3. KARDEGIC [Suspect]
     Dosage: 160 MG, QD
  4. ADANCOR [Suspect]
     Dosage: 40 MG, DAILY
  5. ACEBUTOLOL [Suspect]
  6. OGAST [Suspect]
     Dosage: 30 MG, QD
  7. LEXOMIL [Suspect]
     Dosage: 18 MG, DAILY
     Dates: start: 20100501
  8. ESCITALOPRAM [Suspect]
     Dosage: 20 MG, QD
     Dates: start: 20100501
  9. MEPRONIZINE [Suspect]
     Dosage: 01 DF, QD
     Dates: start: 20100501

REACTIONS (5)
  - DEPRESSION [None]
  - OPTIC NEUROPATHY [None]
  - PALLOR [None]
  - VISUAL ACUITY REDUCED [None]
  - VISUAL EVOKED POTENTIALS ABNORMAL [None]
